FAERS Safety Report 15695384 (Version 1)
Quarter: 2018Q4

REPORT INFORMATION
  Report Type: Spontaneous
  Country: SE (occurrence: SE)
  Receive Date: 20181206
  Receipt Date: 20181206
  Transmission Date: 20190205
  Serious: Yes (Death)
  Sender: FDA-Public Use
  Company Number: SE-TEVA-2018-SE-982630

PATIENT
  Age: 89 Year
  Sex: Female

DRUGS (7)
  1. LOCOBASE LPL [Concomitant]
  2. BEHEPAN 1 MG FILMDRAGERAD TABLETT [Concomitant]
  3. FOLACIN 1 MG TABLETT [Concomitant]
  4. MIRTAZAPIN ACTAVIS 30 MG FILMDRAGERAD TABLETT [Suspect]
     Active Substance: MIRTAZAPINE
     Indication: DEPRESSION
     Dosage: 30 MILLIGRAM DAILY; WERE SUBJECTED TO THEIR OWN DISCRETION BY THE PATIENT, UNCLEAR WHEN/HOW LONG. RE
     Route: 048
     Dates: start: 20171215
  5. IMOVANE [Concomitant]
     Active Substance: ZOPICLONE
  6. ELOCON 0,1 % SALVA [Concomitant]
  7. MIRTAZAPIN ACTAVIS 30 MG FILMDRAGERAD TABLETT [Suspect]
     Active Substance: MIRTAZAPINE
     Indication: SLEEP DISORDER

REACTIONS (1)
  - Completed suicide [Fatal]

NARRATIVE: CASE EVENT DATE: 201803
